FAERS Safety Report 9165478 (Version 1)
Quarter: 2013Q1

REPORT INFORMATION
  Report Type: Spontaneous
  Country: US (occurrence: US)
  Receive Date: 20130315
  Receipt Date: 20130315
  Transmission Date: 20140127
  Serious: Yes (Hospitalization)
  Sender: FDA-Public Use
  Company Number: US-BAYER-2013-030511

PATIENT
  Age: 40 Year
  Sex: Female
  Weight: 63.95 kg

DRUGS (4)
  1. YAZ [Suspect]
     Indication: CONTRACEPTION
  2. VICODIN [Concomitant]
     Indication: PAIN
  3. MOTRIN [Concomitant]
     Indication: PAIN
  4. GIANVI [Suspect]

REACTIONS (1)
  - Pulmonary embolism [None]
